FAERS Safety Report 5451818-8 (Version None)
Quarter: 2007Q3

REPORT INFORMATION
  Report Type: 
  Country: None (occurrence: None)
  Receive Date: 20070912
  Receipt Date: 20070907
  Transmission Date: 20080115
  Serious: Yes (Life-Threatening)
  Sender: FDA-Public Use
  Company Number: TCI2006A05546

PATIENT
  Age: 79 Year
  Sex: Male

DRUGS (11)
  1. LEUPROLIDE ACETATE [Suspect]
     Indication: PROSTATE CANCER STAGE IV
     Dosage: 11.25 MG (11.25 MG, 1 IN 12 WK) SUBCUTANEOUS
     Route: 058
     Dates: start: 20060214, end: 20060214
  2. CASODEX [Concomitant]
  3. ARTIST (CARVEDILOL) (TABLETS) [Concomitant]
  4. ALDACTONE-A (SPIRONOLACTONE) (TABLETS) [Concomitant]
  5. ACECOL (TEMOCAPRIL HYDROCHLORIDE) (TABLETS) [Concomitant]
  6. OMEPRAL (OMEPRAZOLE) (TABLETS) [Concomitant]
  7. NU LOTAN (LOSARTAN POTASSIUM) (TABLETS) [Concomitant]
  8. FERROMIA (FERROUS CITRATE) (TABLETS) [Concomitant]
  9. PURSENNID (SENNOSIDE A+B) (TABLETS) [Concomitant]
  10. LASIX [Concomitant]
  11. WARFARIN (WARFARIN POTASSIUM) (TABLETS) [Concomitant]

REACTIONS (7)
  - ANOREXIA [None]
  - ARRHYTHMIA [None]
  - CARDIAC FAILURE CONGESTIVE [None]
  - HAEMODIALYSIS [None]
  - PLEURAL EFFUSION [None]
  - RENAL FAILURE ACUTE [None]
  - RESPIRATORY TRACT INFECTION [None]
